FAERS Safety Report 9204619 (Version 3)
Quarter: 2013Q2

REPORT INFORMATION
  Report Type: Report from Study
  Country: US (occurrence: US)
  Receive Date: 20130402
  Receipt Date: 20130531
  Transmission Date: 20140414
  Serious: Yes (Other)
  Sender: FDA-Public Use
  Company Number: PHEH2013US007496

PATIENT
  Age: 82 Year
  Sex: Female

DRUGS (1)
  1. EXELON PATCH [Suspect]
     Indication: DEMENTIA ALZHEIMER^S TYPE
     Dosage: 9.5 MG, QD
     Route: 062
     Dates: start: 20120901

REACTIONS (4)
  - Abasia [Recovering/Resolving]
  - Cystitis [Recovering/Resolving]
  - Tremor [Recovering/Resolving]
  - Confusional state [Unknown]
